FAERS Safety Report 5485433-7 (Version None)
Quarter: 2007Q4

REPORT INFORMATION
  Report Type: 
  Country: None (occurrence: None)
  Receive Date: 20071010
  Receipt Date: 20070927
  Transmission Date: 20080405
  Serious: Yes (Hospitalization)
  Sender: FDA-Public Use
  Company Number: 2007BI020663

PATIENT
  Age: 61 Year
  Sex: Female

DRUGS (1)
  1. AVONEX [Suspect]
     Indication: MULTIPLE SCLEROSIS
     Dosage: IM
     Route: 030
     Dates: start: 20070516

REACTIONS (5)
  - FALL [None]
  - LOSS OF CONTROL OF LEGS [None]
  - SENSATION OF HEAVINESS [None]
  - SOMNOLENCE [None]
  - URINARY INCONTINENCE [None]
